FAERS Safety Report 20837865 (Version 1)
Quarter: 2022Q2

REPORT INFORMATION
  Report Type: Spontaneous
  Country: US (occurrence: US)
  Receive Date: 20220517
  Receipt Date: 20220517
  Transmission Date: 20220721
  Serious: No
  Sender: FDA-Public Use
  Company Number: US-ALLERGAN-2120633US

PATIENT
  Sex: Female
  Weight: 65.7 kg

DRUGS (2)
  1. KYBELLA [Suspect]
     Active Substance: DEOXYCHOLIC ACID
     Indication: Fat tissue increased
     Dosage: UNK, SINGLE
     Dates: start: 20210525, end: 20210525
  2. COVID-19 VACCINE [Concomitant]
     Indication: COVID-19 immunisation
     Dosage: UNK
     Dates: start: 202104, end: 202104

REACTIONS (4)
  - Lip pruritus [Recovering/Resolving]
  - Lip swelling [Recovering/Resolving]
  - Cheilitis [Recovering/Resolving]
  - Skin tightness [Recovering/Resolving]

NARRATIVE: CASE EVENT DATE: 20210526
